FAERS Safety Report 14166153 (Version 1)
Quarter: 2017Q4

REPORT INFORMATION
  Report Type: Spontaneous
  Country: US (occurrence: US)
  Receive Date: 20171107
  Receipt Date: 20171107
  Transmission Date: 20180321
  Serious: No
  Sender: FDA-Public Use
  Company Number: US-MISSION PHARMACAL COMPANY-2033404

PATIENT
  Age: 73 Year
  Sex: Female

DRUGS (1)
  1. THIOLA [Suspect]
     Active Substance: TIOPRONIN
     Indication: CYSTINURIA
     Route: 065
     Dates: start: 20171012

REACTIONS (7)
  - Dysphagia [Unknown]
  - Weight decreased [Unknown]
  - Cough [Unknown]
  - Choking [Unknown]
  - Nausea [Unknown]
  - Drug dose omission [Unknown]
  - Gastrooesophageal reflux disease [Unknown]
